FAERS Safety Report 25979050 (Version 1)
Quarter: 2025Q4

REPORT INFORMATION
  Report Type: Other
  Country: GB (occurrence: GB)
  Receive Date: 20251030
  Receipt Date: 20251030
  Transmission Date: 20260118
  Serious: Yes (Other)
  Sender: BIOCON
  Company Number: GB-009507513-2341030

PATIENT

DRUGS (4)
  1. BEVACIZUMAB [Suspect]
     Active Substance: BEVACIZUMAB
     Indication: Ovarian cancer stage III
     Dosage: UNK
     Route: 065
  2. OLAPARIB [Suspect]
     Active Substance: OLAPARIB
     Indication: Ovarian cancer stage III
     Dosage: UNK
     Route: 048
     Dates: start: 202411, end: 20250514
  3. OLAPARIB [Suspect]
     Active Substance: OLAPARIB
     Dosage: 500 MILLIGRAM, QD (250 MG, BID (DOSE REDUCED))
     Route: 048
     Dates: start: 20250626, end: 20250806
  4. OLAPARIB [Suspect]
     Active Substance: OLAPARIB
     Dosage: 400 MILLIGRAM, QD (200 MILLIGRAM, BID (DOSE REDUCED))
     Route: 048
     Dates: start: 20250826, end: 20251009

REACTIONS (2)
  - Anaemia [Unknown]
  - Infection [Unknown]

NARRATIVE: CASE EVENT DATE: 20250101
